FAERS Safety Report 13834834 (Version 2)
Quarter: 2017Q3

REPORT INFORMATION
  Report Type: Spontaneous
  Country: DE (occurrence: DE)
  Receive Date: 20170804
  Receipt Date: 20170831
  Transmission Date: 20171127
  Serious: Yes (Life-Threatening, Hospitalization, Other)
  Sender: FDA-Public Use
  Company Number: DE-B.I. PHARMACEUTICALS,INC./RIDGEFIELD-2017-BI-043087

PATIENT
  Age: 78 Year
  Sex: Female
  Weight: 80 kg

DRUGS (1)
  1. SYNJARDY [Suspect]
     Active Substance: EMPAGLIFLOZIN\METFORMIN HYDROCHLORIDE
     Indication: TYPE 2 DIABETES MELLITUS
     Dosage: FORM STRENGTH: 5/850
     Route: 065
     Dates: start: 2016, end: 20170730

REACTIONS (13)
  - Ketoacidosis [Recovered/Resolved]
  - Base excess abnormal [Not Recovered/Not Resolved]
  - Urine ketone body present [Not Recovered/Not Resolved]
  - Confusional state [Unknown]
  - Electrolyte imbalance [Unknown]
  - Blood pH abnormal [Unknown]
  - Lactic acidosis [Unknown]
  - Blood glucose abnormal [Unknown]
  - Asthenia [Unknown]
  - Fatigue [Unknown]
  - Hypovolaemia [Unknown]
  - Blood lactic acid increased [Not Recovered/Not Resolved]
  - Acute kidney injury [Unknown]

NARRATIVE: CASE EVENT DATE: 20170730
